FAERS Safety Report 6805914-0 (Version None)
Quarter: 2010Q2

REPORT INFORMATION
  Report Type: 
  Country: None (occurrence: None)
  Receive Date: 20100629
  Receipt Date: 20071018
  Transmission Date: 20101027
  Serious: Yes (Hospitalization, Other)
  Sender: FDA-Public Use
  Company Number: US-PFIZER INC-2007083134

PATIENT
  Sex: Female
  Weight: 59.09 kg

DRUGS (4)
  1. TIKOSYN [Suspect]
     Indication: ATRIAL FIBRILLATION
     Dates: start: 20040501
  2. PLAVIX [Concomitant]
     Dates: end: 20070301
  3. ACETYLSALICYLIC ACID [Concomitant]
     Dates: end: 20070301
  4. DIOVANE [Concomitant]
     Indication: HYPERTENSION

REACTIONS (1)
  - ATRIAL FIBRILLATION [None]
